FAERS Safety Report 7324320-6 (Version None)
Quarter: 2011Q1

REPORT INFORMATION
  Report Type: 
  Country: None (occurrence: None)
  Receive Date: 20110202
  Receipt Date: 20101116
  Transmission Date: 20110831
  Serious: No
  Sender: FDA-Public Use
  Company Number: 2010-15038

PATIENT
  Age: 63 Year
  Sex: Male
  Weight: 77.1 kg

DRUGS (1)
  1. RAPAFLO [Suspect]
     Indication: BENIGN PROSTATIC HYPERPLASIA
     Dosage: 1 TABLET, DAILY, ORAL
     Route: 048
     Dates: start: 20101112

REACTIONS (1)
  - DRUG INEFFECTIVE [None]
